FAERS Safety Report 22254658 (Version 2)
Quarter: 2023Q2

REPORT INFORMATION
  Report Type: Spontaneous
  Country: JP (occurrence: JP)
  Receive Date: 20230426
  Receipt Date: 20230608
  Transmission Date: 20230722
  Serious: Yes (Other)
  Sender: FDA-Public Use
  Company Number: JP-BRISTOL-MYERS SQUIBB COMPANY-2023-059490

PATIENT
  Age: 43 Year
  Sex: Female

DRUGS (6)
  1. VIDAZA [Suspect]
     Active Substance: AZACITIDINE
     Indication: Myelodysplastic syndrome
     Dosage: 1ST COURSE
     Route: 042
  2. VIDAZA [Suspect]
     Active Substance: AZACITIDINE
     Dosage: 2ND COURSE ADMINISTERED AT HALF DOSE
     Route: 042
  3. PREDNISOLONE [Concomitant]
     Active Substance: PREDNISOLONE
     Indication: Behcet^s syndrome
  4. ADALIMUMAB (GENETICAL RECOMBINATION) [Concomitant]
     Indication: Behcet^s syndrome
  5. AZATHIOPRINE [Concomitant]
     Active Substance: AZATHIOPRINE
     Indication: Gastrointestinal disorder
  6. INFLIXIMAB [Concomitant]
     Active Substance: INFLIXIMAB
     Indication: Gastrointestinal disorder

REACTIONS (2)
  - Febrile neutropenia [Unknown]
  - Intestinal perforation [Unknown]
